FAERS Safety Report 7019135-2 (Version None)
Quarter: 2010Q3

REPORT INFORMATION
  Report Type: 
  Country: None (occurrence: None)
  Receive Date: 20100928
  Receipt Date: 20100923
  Transmission Date: 20110219
  Serious: Yes (Hospitalization)
  Sender: FDA-Public Use
  Company Number: Z0005486B

PATIENT
  Sex: Male
  Weight: 64 kg

DRUGS (3)
  1. ELTROMBOPAG [Suspect]
     Indication: IDIOPATHIC THROMBOCYTOPENIC PURPURA
     Route: 048
     Dates: start: 20100730
  2. WARFARIN [Concomitant]
     Indication: THROMBOPHLEBITIS
     Dosage: 5MG PER DAY
     Route: 048
     Dates: start: 20100830, end: 20100918
  3. MORPHINE SULFATE [Concomitant]
     Dosage: 30MG TWICE PER DAY
     Route: 048
     Dates: start: 20100918, end: 20100921

REACTIONS (2)
  - ABDOMINAL PAIN UPPER [None]
  - CHEST PAIN [None]
